FAERS Safety Report 4449837-3 (Version None)
Quarter: 2004Q3

REPORT INFORMATION
  Report Type: 
  Country: None (occurrence: None)
  Receive Date: 20040802
  Receipt Date: 20040405
  Transmission Date: 20050211
  Serious: No
  Sender: FDA-Public Use
  Company Number: 2004-114692-NL

PATIENT
  Age: 23 Year
  Sex: Female
  Weight: 59.1 kg

DRUGS (4)
  1. NUVARING [Suspect]
     Indication: CONTRACEPTION
     Dosage: DF DAILY VAGINAL
     Route: 067
     Dates: start: 20031101
  2. WELLBUTRIN [Concomitant]
  3. SERZONE [Concomitant]
  4. LEXAPRO [Concomitant]

REACTIONS (2)
  - MENORRHAGIA [None]
  - MENSTRUATION IRREGULAR [None]
